FAERS Safety Report 21703302 (Version 2)
Quarter: 2023Q1

REPORT INFORMATION
  Report Type: Spontaneous
  Country: ES (occurrence: ES)
  Receive Date: 20221209
  Receipt Date: 20230206
  Transmission Date: 20230418
  Serious: Yes (Death, Other)
  Sender: FDA-Public Use
  Company Number: ES-AMGEN-ESPSP2022209064

PATIENT

DRUGS (6)
  1. PROLIA [Suspect]
     Active Substance: DENOSUMAB
     Indication: Osteoporosis
     Dosage: UNK
     Route: 065
  2. CALCIUM [Concomitant]
     Active Substance: CALCIUM
     Dosage: LESS THAN 500 MG/DAY
  3. CALCIUM [Concomitant]
     Active Substance: CALCIUM
     Dosage: 500-750 MG/DAY
  4. CALCIUM [Concomitant]
     Active Substance: CALCIUM
     Dosage: 750-1000 MG/DAY
  5. CALCIUM [Concomitant]
     Active Substance: CALCIUM
     Dosage: GEATER THAN 1000 MG/DAY
  6. VITAMIN D [Concomitant]
     Active Substance: VITAMIN D NOS
     Dosage: UNK

REACTIONS (10)
  - Death [Fatal]
  - Hip fracture [Unknown]
  - Lumbar vertebral fracture [Unknown]
  - Pelvic fracture [Unknown]
  - Pathological fracture [Unknown]
  - Traumatic fracture [Unknown]
  - Treatment noncompliance [Unknown]
  - Fracture [Unknown]
  - Humerus fracture [Unknown]
  - Wrist fracture [Unknown]
